FAERS Safety Report 24767215 (Version 1)
Quarter: 2024Q4

REPORT INFORMATION
  Report Type: Spontaneous
  Country: FR (occurrence: FR)
  Receive Date: 20241223
  Receipt Date: 20241223
  Transmission Date: 20250115
  Serious: Yes (Disabling)
  Sender: FRESENIUS KABI
  Company Number: None

PATIENT
  Age: 69 Year
  Sex: Female
  Weight: 59 kg

DRUGS (2)
  1. SODIUM BICARBONATE [Suspect]
     Active Substance: SODIUM BICARBONATE
     Indication: Local anaesthesia
     Route: 023
     Dates: start: 20240507, end: 20240507
  2. XYLOCAINE [Suspect]
     Active Substance: LIDOCAINE HYDROCHLORIDE
     Indication: Local anaesthesia
     Dosage: 18 ML XYLOCAINE 1% WITH 2 ML BICARBONATE 8.4 %?FOA-INJECTION
     Route: 023
     Dates: start: 20240507, end: 20240507

REACTIONS (5)
  - Product deposit [Recovered/Resolved]
  - Skin ulcer [Recovered/Resolved with Sequelae]
  - Administration site discharge [Recovered/Resolved with Sequelae]
  - Administration site haemorrhage [Recovered/Resolved with Sequelae]
  - Postoperative wound complication [Recovered/Resolved with Sequelae]

NARRATIVE: CASE EVENT DATE: 20240507
